FAERS Safety Report 7310709-8 (Version None)
Quarter: 2011Q1

REPORT INFORMATION
  Report Type: 
  Country: None (occurrence: None)
  Receive Date: 20110224
  Receipt Date: 20101006
  Transmission Date: 20110831
  Serious: Yes (Hospitalization)
  Sender: FDA-Public Use
  Company Number: US-BRISTOL-MYERS SQUIBB COMPANY-15321474

PATIENT
  Age: 17 Year
  Sex: Female

DRUGS (7)
  1. CELEXA [Concomitant]
  2. FLUCONAZOLE [Concomitant]
  3. LYSODREN [Suspect]
  4. BACTRIM [Concomitant]
  5. ZOFRAN [Concomitant]
  6. MORPHINE [Concomitant]
  7. OMEPRAZOLE [Concomitant]

REACTIONS (1)
  - ADVERSE EVENT [None]
